FAERS Safety Report 24808407 (Version 1)
Quarter: 2025Q1

REPORT INFORMATION
  Report Type: Spontaneous
  Country: JP (occurrence: JP)
  Receive Date: 20250106
  Receipt Date: 20250106
  Transmission Date: 20250408
  Serious: No
  Sender: ALKEM
  Company Number: JP-ALKEM LABORATORIES LIMITED-JP-ALKEM-2024-24626

PATIENT
  Age: 16 Year
  Sex: Female

DRUGS (4)
  1. TACROLIMUS [Suspect]
     Active Substance: TACROLIMUS
     Indication: Lupus nephritis
     Dosage: 3 MILLIGRAM, OD
     Route: 048
  2. METHYLPREDNISOLONE [Suspect]
     Active Substance: METHYLPREDNISOLONE
     Indication: Lupus nephritis
     Dosage: 20 MILLIGRAM/KILOGRAM, QD (PULSE THERAPY) (ON THREE CONSECUTIVE DAYS EACH WEEK FOR 2 WEEKS)
     Route: 042
  3. MIZORIBINE [Suspect]
     Active Substance: MIZORIBINE
     Indication: Lupus nephritis
     Route: 065
  4. PREDNISOLONE [Suspect]
     Active Substance: PREDNISOLONE
     Indication: Lupus nephritis
     Dosage: 12.5 MILLIGRAM, QD
     Route: 065

REACTIONS (1)
  - Oral herpes [Recovered/Resolved]
